FAERS Safety Report 24825233 (Version 1)
Quarter: 2025Q1

REPORT INFORMATION
  Report Type: Spontaneous
  Country: US (occurrence: US)
  Receive Date: 20250109
  Receipt Date: 20250109
  Transmission Date: 20250408
  Serious: No
  Sender: BIOGEN
  Company Number: US-BIOGENIDEC-2013BI093241

PATIENT
  Sex: Female

DRUGS (1)
  1. TYSABRI [Suspect]
     Active Substance: NATALIZUMAB
     Indication: Multiple sclerosis
     Route: 050
     Dates: start: 20120208

REACTIONS (6)
  - Memory impairment [Unknown]
  - Road traffic accident [Recovered/Resolved]
  - Speech disorder [Recovered/Resolved]
  - Cognitive disorder [Recovered/Resolved]
  - Gait disturbance [Recovered/Resolved]
  - Multiple sclerosis relapse [Recovered/Resolved]
